FAERS Safety Report 7046382-6 (Version None)
Quarter: 2010Q4

REPORT INFORMATION
  Report Type: 
  Country: None (occurrence: None)
  Receive Date: 20101014
  Receipt Date: 20101006
  Transmission Date: 20110411
  Serious: Yes (Other)
  Sender: FDA-Public Use
  Company Number: US-US-EMD SERONO, INC.-7020775

PATIENT
  Sex: Female
  Weight: 59 kg

DRUGS (3)
  1. REBIF [Suspect]
     Indication: MULTIPLE SCLEROSIS
     Route: 058
     Dates: start: 20060807
  2. BACLOFEN [Concomitant]
     Indication: MUSCLE SPASMS
  3. TYLENOL [Concomitant]
     Indication: PREMEDICATION

REACTIONS (1)
  - BREAST CANCER [None]
